FAERS Safety Report 5006479-9 (Version None)
Quarter: 2006Q2

REPORT INFORMATION
  Report Type: 
  Country: None (occurrence: None)
  Receive Date: 20060519
  Receipt Date: 20060511
  Transmission Date: 20061013
  Serious: Yes (Hospitalization)
  Sender: FDA-Public Use
  Company Number: AU-AVENTIS-200615181GDDC

PATIENT
  Age: 56 Year
  Sex: Male

DRUGS (2)
  1. ARAVA [Suspect]
     Indication: RHEUMATOID ARTHRITIS
  2. METHOTREXATE [Suspect]
     Indication: RHEUMATOID ARTHRITIS
     Dosage: DOSE: UNK

REACTIONS (6)
  - HEPATITIS [None]
  - LETHARGY [None]
  - PANCYTOPENIA [None]
  - PNEUMONITIS [None]
  - PYREXIA [None]
  - RENAL IMPAIRMENT [None]
